FAERS Safety Report 6801549-4 (Version None)
Quarter: 2010Q2

REPORT INFORMATION
  Report Type: 
  Country: None (occurrence: None)
  Receive Date: 20100629
  Receipt Date: 20100615
  Transmission Date: 20101027
  Serious: Yes (Other)
  Sender: FDA-Public Use
  Company Number: GB-MYLANLABS-2010S1010624

PATIENT
  Age: 68 Year
  Sex: Male

DRUGS (3)
  1. ROPINIROLE [Suspect]
     Indication: PARKINSON'S DISEASE
  2. CARBIDOPA AND LEVODOPA [Suspect]
     Indication: DRUG USE FOR UNKNOWN INDICATION
  3. ENTACAPONE [Concomitant]

REACTIONS (2)
  - PARKINSON'S DISEASE [None]
  - PROGRESSIVE SUPRANUCLEAR PALSY [None]
